FAERS Safety Report 19351210 (Version 1)
Quarter: 2021Q2

REPORT INFORMATION
  Report Type: Spontaneous
  Country: US (occurrence: US)
  Receive Date: 20210531
  Receipt Date: 20210531
  Transmission Date: 20210717
  Serious: No
  Sender: FDA-Public Use
  Company Number: US-TEVA-2021-US-1909156

PATIENT
  Sex: Male

DRUGS (1)
  1. AUSTEDO [Suspect]
     Active Substance: DEUTETRABENAZINE
     Indication: TARDIVE DYSKINESIA
     Dosage: 36 MILLIGRAM DAILY; (12 MG + 6 MG)
     Route: 048
     Dates: start: 202011

REACTIONS (5)
  - Akathisia [Unknown]
  - Dyskinesia [Unknown]
  - Penis disorder [Unknown]
  - Restlessness [Unknown]
  - Genital pain [Unknown]
